FAERS Safety Report 9803026 (Version 6)
Quarter: 2014Q3

REPORT INFORMATION
  Report Type: Report from Study
  Country: DE (occurrence: DE)
  Receive Date: 20140108
  Receipt Date: 20140930
  Transmission Date: 20150326
  Serious: Yes (Hospitalization)
  Sender: FDA-Public Use
  Company Number: DE-ROCHE-1327251

PATIENT
  Age: 64 Year
  Sex: Male
  Weight: 65.7 kg

DRUGS (29)
  1. REFOBACIN [Concomitant]
     Indication: INFECTION
     Route: 065
     Dates: start: 20131127, end: 20131203
  2. REKAWAN [Concomitant]
     Active Substance: POTASSIUM CHLORIDE
     Indication: HYPOKALAEMIA
     Route: 065
     Dates: start: 20131129, end: 20131206
  3. TEPILTA [Concomitant]
     Active Substance: ALUMINUM HYDROXIDE\MAGNESIUM OXIDE\OXETHAZAINE
     Indication: OESOPHAGITIS
     Route: 065
     Dates: start: 20131227, end: 20140102
  4. TAVEGIL [Concomitant]
     Active Substance: CLEMASTINE FUMARATE
     Indication: RASH
     Route: 065
     Dates: start: 20131128, end: 20131212
  5. CLINDA-SAAR [Concomitant]
     Indication: INFECTION
     Route: 065
     Dates: start: 20131212, end: 20131220
  6. LAXANS-RATIOPHARM (GERMANY) [Concomitant]
     Indication: CONSTIPATION
     Route: 065
     Dates: start: 20131230, end: 20131230
  7. PANTOZOL [Concomitant]
     Active Substance: PANTOPRAZOLE SODIUM
     Indication: ULCER
     Route: 065
     Dates: start: 20131020
  8. CIPROBAY [Concomitant]
     Active Substance: CIPROFLOXACIN
     Indication: INFECTION
     Route: 065
     Dates: start: 20131128, end: 20131226
  9. COTRIM [Concomitant]
     Active Substance: SULFAMETHOXAZOLE\TRIMETHOPRIM
     Indication: INFECTION
     Route: 065
     Dates: start: 20131228, end: 20140106
  10. MILAX [Concomitant]
     Indication: CONSTIPATION
     Route: 065
     Dates: start: 20131230, end: 20131230
  11. VISMODEGIB [Suspect]
     Active Substance: VISMODEGIB
     Indication: ACUTE MYELOID LEUKAEMIA
     Dosage: MOST RECENT DOSE PRIOR TO SAE: 26/DEC/2013
     Route: 048
     Dates: start: 20131108
  12. VFEND [Concomitant]
     Active Substance: VORICONAZOLE
     Indication: INFECTION
     Route: 065
     Dates: start: 20131128, end: 20131204
  13. MAGNESIOCARD [Concomitant]
     Active Substance: MAGNESIUM ASPARTATE HYDROCHLORIDE
     Route: 065
     Dates: start: 20140103, end: 20140113
  14. LASIX [Concomitant]
     Active Substance: FUROSEMIDE
     Indication: DYSPNOEA
     Route: 065
     Dates: start: 20131203, end: 20131203
  15. SODIUM CHLORIDE. [Concomitant]
     Active Substance: SODIUM CHLORIDE
     Indication: DEHYDRATION
     Route: 065
     Dates: start: 20131227, end: 20140101
  16. NOVALGIN [Concomitant]
     Active Substance: METAMIZOLE SODIUM
     Route: 065
     Dates: start: 20140104, end: 20140104
  17. CLINDAMYCIN [Concomitant]
     Active Substance: CLINDAMYCIN\CLINDAMYCIN PHOSPHATE
     Indication: INFECTION
     Route: 065
     Dates: start: 20140105, end: 20140110
  18. TAZOBACTAM [Concomitant]
     Active Substance: TAZOBACTAM
     Indication: INFECTION
     Route: 065
     Dates: start: 20131127, end: 20131128
  19. VFEND [Concomitant]
     Active Substance: VORICONAZOLE
     Route: 065
     Dates: start: 20131205, end: 20140114
  20. GLUCOSE [Concomitant]
     Active Substance: DEXTROSE
     Indication: DEHYDRATION
     Route: 065
     Dates: start: 20131206, end: 20131210
  21. TRAMAL [Concomitant]
     Active Substance: TRAMADOL
     Indication: PAIN
     Route: 065
     Dates: start: 20140105, end: 20140113
  22. TRAMAL [Concomitant]
     Active Substance: TRAMADOL
     Route: 065
     Dates: start: 20140105, end: 20140105
  23. ERYTHROCYTES [Concomitant]
     Active Substance: HUMAN RED BLOOD CELL
     Indication: ANAEMIA
     Route: 065
     Dates: start: 20131107, end: 20140103
  24. THROMBOCYTES [Concomitant]
     Active Substance: UNSPECIFIED INGREDIENT
     Indication: THROMBOCYTOPENIA
     Route: 065
     Dates: start: 20131107, end: 20140113
  25. MAGNESIOCARD [Concomitant]
     Active Substance: MAGNESIUM ASPARTATE HYDROCHLORIDE
     Indication: HYPOMAGNESAEMIA
     Route: 065
     Dates: start: 20131130, end: 20131217
  26. BELOC-ZOK [Concomitant]
     Active Substance: METOPROLOL SUCCINATE
     Indication: CARDIAC FAILURE
     Route: 065
     Dates: start: 20131020
  27. TEPILTA [Concomitant]
     Active Substance: ALUMINUM HYDROXIDE\MAGNESIUM OXIDE\OXETHAZAINE
     Indication: OESOPHAGEAL PAIN
  28. NOVALGIN [Concomitant]
     Active Substance: METAMIZOLE SODIUM
     Indication: PAIN
     Route: 065
     Dates: start: 20131228, end: 20131228
  29. LAXANS-RATIOPHARM (GERMANY) [Concomitant]
     Route: 065
     Dates: start: 20140104, end: 20140104

REACTIONS (1)
  - Oesophageal pain [Recovered/Resolved]

NARRATIVE: CASE EVENT DATE: 20131227
